FAERS Safety Report 17380560 (Version 9)
Quarter: 2021Q1

REPORT INFORMATION
  Report Type: Report from Study
  Country: US (occurrence: US)
  Receive Date: 20200206
  Receipt Date: 20210318
  Transmission Date: 20210419
  Serious: Yes (Other)
  Sender: FDA-Public Use
  Company Number: NVSC2020US028625

PATIENT
  Sex: Female

DRUGS (2)
  1. COSENTYX [Suspect]
     Active Substance: SECUKINUMAB
     Indication: PSORIATIC ARTHROPATHY
  2. COSENTYX [Suspect]
     Active Substance: SECUKINUMAB
     Indication: ANKYLOSING SPONDYLITIS
     Dosage: 150 MG, QMO
     Route: 058

REACTIONS (9)
  - Rash [Unknown]
  - Therapeutic response shortened [Unknown]
  - Device issue [Unknown]
  - Psoriatic arthropathy [Unknown]
  - Incorrect dosage administered [Unknown]
  - Pain [Unknown]
  - Ankylosing spondylitis [Unknown]
  - Malaise [Unknown]
  - Intervertebral disc disorder [Unknown]
